FAERS Safety Report 23546355 (Version 1)
Quarter: 2024Q1

REPORT INFORMATION
  Report Type: Report from Study
  Country: GR (occurrence: GR)
  Receive Date: 20240220
  Receipt Date: 20240220
  Transmission Date: 20240410
  Serious: Yes (Other)
  Sender: FDA-Public Use
  Company Number: GR-CELLTRION INC.-2024GR003858

PATIENT

DRUGS (1)
  1. INFLIXIMAB [Suspect]
     Active Substance: INFLIXIMAB
     Indication: Ankylosing spondylitis
     Dosage: 120 MG, Q2WEEKS (MAINTENANCE SCHEME)
     Route: 058
     Dates: start: 202309

REACTIONS (1)
  - Ankylosing spondylitis [Unknown]
